FAERS Safety Report 20519292 (Version 1)
Quarter: 2022Q1

REPORT INFORMATION
  Report Type: Spontaneous
  Country: US (occurrence: US)
  Receive Date: 20220225
  Receipt Date: 20220225
  Transmission Date: 20220423
  Serious: No
  Sender: FDA-Public Use
  Company Number: US-NOVOPROD-859599

PATIENT
  Sex: Female

DRUGS (1)
  1. VICTOZA [Suspect]
     Active Substance: LIRAGLUTIDE
     Indication: Product used for unknown indication
     Dosage: 1.8 MG, QD
     Route: 058

REACTIONS (5)
  - Arthritis [Unknown]
  - Confusional state [Not Recovered/Not Resolved]
  - Bone pain [Not Recovered/Not Resolved]
  - Panic reaction [Unknown]
  - Malaise [Recovered/Resolved]
